FAERS Safety Report 9211440 (Version 1)
Quarter: 2013Q2

REPORT INFORMATION
  Report Type: Spontaneous
  Country: US (occurrence: US)
  Receive Date: 20130404
  Receipt Date: 20130404
  Transmission Date: 20140414
  Serious: No
  Sender: FDA-Public Use
  Company Number: US-AMGEN-USASP2013015361

PATIENT
  Age: 30 Year
  Sex: Male

DRUGS (2)
  1. ENBREL [Suspect]
     Indication: REITER^S SYNDROME
     Dosage: 50 MG, Q2WK  (ONCE EVERY TWO WEEKS )
     Dates: start: 201006
  2. ENBREL [Suspect]

REACTIONS (2)
  - Arthralgia [Unknown]
  - Gait disturbance [Not Recovered/Not Resolved]
